FAERS Safety Report 24086577 (Version 1)
Quarter: 2024Q3

REPORT INFORMATION
  Report Type: Report from Study
  Country: US (occurrence: US)
  Receive Date: 20240713
  Receipt Date: 20240713
  Transmission Date: 20241017
  Serious: Yes (Hospitalization, Other)
  Sender: JOHNSON AND JOHNSON
  Company Number: US-JNJFOC-20240717241

PATIENT
  Sex: Male

DRUGS (1)
  1. RIVAROXABAN [Suspect]
     Active Substance: RIVAROXABAN
     Indication: Product used for unknown indication
     Route: 048

REACTIONS (13)
  - Haematochezia [Unknown]
  - Blood pressure decreased [Unknown]
  - Atrial fibrillation [Not Recovered/Not Resolved]
  - Hospitalisation [Unknown]
  - Road traffic accident [Unknown]
  - Rib fracture [Unknown]
  - Contusion [Unknown]
  - Haemoptysis [Unknown]
  - Constipation [Not Recovered/Not Resolved]
  - Peripheral swelling [Not Recovered/Not Resolved]
  - Fall [Unknown]
  - Chest pain [Unknown]
  - Testicular swelling [Not Recovered/Not Resolved]
